FAERS Safety Report 23321409 (Version 1)
Quarter: 2023Q4

REPORT INFORMATION
  Report Type: Spontaneous
  Country: CA (occurrence: CA)
  Receive Date: 20231220
  Receipt Date: 20231220
  Transmission Date: 20240109
  Serious: Yes (Hospitalization)
  Sender: FDA-Public Use
  Company Number: CA-TAKEDA-2023TUS117357

PATIENT
  Age: 82 Year

DRUGS (12)
  1. LANSOPRAZOLE [Suspect]
     Active Substance: LANSOPRAZOLE
     Indication: Product used for unknown indication
     Dosage: UNK
     Route: 065
  2. RAMIPRIL [Concomitant]
     Active Substance: RAMIPRIL
  3. ALLOPURINOL [Concomitant]
     Active Substance: ALLOPURINOL
  4. FERROUS GLUCONATE [Concomitant]
     Active Substance: FERROUS GLUCONATE
  5. HYDROCHLOROTHIAZIDE [Concomitant]
     Active Substance: HYDROCHLOROTHIAZIDE
  6. CELECOXIB [Concomitant]
     Active Substance: CELECOXIB
  7. APALUTAMIDE [Suspect]
     Active Substance: APALUTAMIDE
     Indication: Hormone-dependent prostate cancer
     Dosage: 240 MILLIGRAM, QID
     Route: 048
  8. CLONIDINE [Concomitant]
     Active Substance: CLONIDINE
  9. MIRABEGRON [Concomitant]
     Active Substance: MIRABEGRON
  10. TAMSULOSIN [Concomitant]
     Active Substance: TAMSULOSIN
  11. VENLAFAXINE [Concomitant]
     Active Substance: VENLAFAXINE HYDROCHLORIDE
  12. ROSUVASTATIN [Concomitant]
     Active Substance: ROSUVASTATIN
     Route: 058

REACTIONS (4)
  - Drug interaction [Recovering/Resolving]
  - Fall [Recovering/Resolving]
  - Thrombosis [Recovering/Resolving]
  - Head injury [Recovering/Resolving]
